FAERS Safety Report 20520493 (Version 1)
Quarter: 2022Q1

REPORT INFORMATION
  Report Type: Report from Study
  Country: US (occurrence: US)
  Receive Date: 20220225
  Receipt Date: 20220225
  Transmission Date: 20220423
  Serious: No
  Sender: FDA-Public Use
  Company Number: US-REGENERON PHARMACEUTICALS, INC.-2022-027602

PATIENT
  Age: 25 Year
  Sex: Male

DRUGS (1)
  1. CASIRIVIMAB\IMDEVIMAB [Suspect]
     Active Substance: CASIRIVIMAB\IMDEVIMAB
     Indication: Product use in unapproved indication
     Dosage: 0.5 ML, UNK
     Route: 030
     Dates: start: 20220210, end: 20220210

REACTIONS (5)
  - Wrong product administered [Unknown]
  - Underdose [Unknown]
  - Incorrect route of product administration [Unknown]
  - Headache [Unknown]
  - Somnolence [Unknown]

NARRATIVE: CASE EVENT DATE: 20220210
